FAERS Safety Report 10020575 (Version 2)
Quarter: 2014Q1

REPORT INFORMATION
  Report Type: Spontaneous
  Country: IE (occurrence: IE)
  Receive Date: 20140319
  Receipt Date: 20140319
  Transmission Date: 20141002
  Serious: Yes (Hospitalization)
  Sender: FDA-Public Use
  Company Number: PHFR2014IE001290

PATIENT
  Age: 40 Year
  Sex: Female

DRUGS (16)
  1. CLOZARIL [Suspect]
     Dosage: UNK
     Route: 048
     Dates: start: 20130423
  2. CLOZARIL [Suspect]
     Dosage: 150 MG, DAILY
     Route: 048
  3. INSULIN [Concomitant]
     Indication: DIABETES MELLITUS
     Dosage: UNK
  4. FLURAZEPAM [Concomitant]
     Dosage: 30 MG, QHS (NOCTE)
  5. ARIPIPRAZOLE [Concomitant]
     Dosage: 30 MG, DAILY
  6. VENLAFAXINE [Concomitant]
     Dosage: 375 MG, DAILY
  7. HYOSCINE HYDROBROMIDE [Concomitant]
     Dosage: 300 MG, BID
  8. PROTIUM//ESOMEPRAZOLE MAGNESIUM [Concomitant]
     Dosage: 40 MG, BID
  9. HALOPERIDOL [Concomitant]
     Dosage: 2.5 MG, BID
  10. LANTUS [Concomitant]
     Dosage: 20 IU, QHS (NOCTE)
  11. HUMALOG [Concomitant]
     Dosage: UNK IU, TID (16-18 IU)
  12. DOMPERIDONE [Concomitant]
     Dosage: 10 MG, TID
  13. STEMETIL//PROCHLORPERAZINE [Concomitant]
     Dosage: 12.5 MG, UNK
     Route: 030
  14. STEMETIL//PROCHLORPERAZINE [Concomitant]
     Dosage: 5 MG, UNK
     Route: 048
  15. WARFARIN [Concomitant]
     Dosage: 4 MG, DAILY
  16. FLUCONAZOLE [Concomitant]
     Dosage: 200 MG, DAILY

REACTIONS (9)
  - Oesophageal candidiasis [Unknown]
  - Barrett^s oesophagus [Unknown]
  - Pulmonary embolism [Unknown]
  - Gastroenteritis [Unknown]
  - Diabetic ketoacidosis [Unknown]
  - Vomiting [Unknown]
  - Mental impairment [Unknown]
  - White blood cell count increased [Unknown]
  - Neutrophil count increased [Unknown]
